FAERS Safety Report 4347226-3 (Version None)
Quarter: 2004Q2

REPORT INFORMATION
  Report Type: 
  Country: None (occurrence: None)
  Receive Date: 20040426
  Receipt Date: 20040421
  Transmission Date: 20050107
  Serious: Yes (Life-Threatening)
  Sender: FDA-Public Use
  Company Number: JP-MERCK-0404USA02088

PATIENT
  Age: 85 Year
  Sex: Female

DRUGS (5)
  1. FOSAMAX [Suspect]
     Indication: OSTEOPOROSIS
     Route: 048
     Dates: start: 20040128, end: 20040327
  2. BUFFERIN [Concomitant]
     Route: 048
  3. BENSERAZIDE HYDROCHLORIDE AND LEVODOPA [Concomitant]
     Route: 048
  4. BAYMYCARD [Concomitant]
     Route: 048
  5. WARFARIN [Concomitant]
     Route: 048

REACTIONS (2)
  - OESOPHAGEAL HAEMORRHAGE [None]
  - SHOCK HAEMORRHAGIC [None]
